FAERS Safety Report 6983942-2 (Version None)
Quarter: 2010Q3

REPORT INFORMATION
  Report Type: 
  Country: None (occurrence: None)
  Receive Date: 20100914
  Receipt Date: 20090415
  Transmission Date: 20110219
  Serious: No
  Sender: FDA-Public Use
  Company Number: US-WYE-H08980209

PATIENT
  Sex: Male
  Weight: 78.09 kg

DRUGS (5)
  1. PHOSPHOLINE IODIDE [Suspect]
     Indication: GLAUCOMA
     Route: 047
     Dates: start: 20080601
  2. PILOCARPINE HYDROCHLORIDE [Concomitant]
  3. XALATAN [Concomitant]
  4. COSOPT [Concomitant]
  5. ALPHAGAN [Concomitant]

REACTIONS (1)
  - EYE PAIN [None]
